FAERS Safety Report 18913472 (Version 2)
Quarter: 2021Q1

REPORT INFORMATION
  Report Type: Spontaneous
  Country: RU (occurrence: RU)
  Receive Date: 20210218
  Receipt Date: 20210226
  Transmission Date: 20210420
  Serious: Yes (Other)
  Sender: FDA-Public Use
  Company Number: IT-SUNOVION-2021SUN000491

PATIENT
  Age: 33 Year
  Sex: Male

DRUGS (2)
  1. LATUDA [Suspect]
     Active Substance: LURASIDONE HYDROCHLORIDE
     Indication: DEPRESSION
     Dosage: UNK
     Route: 048
     Dates: end: 20210207
  2. LATUDA [Suspect]
     Active Substance: LURASIDONE HYDROCHLORIDE
     Indication: BIPOLAR DISORDER
     Dosage: UNK
     Route: 048
     Dates: end: 20210207

REACTIONS (9)
  - Erythema [Recovered/Resolved]
  - Dry mouth [Recovered/Resolved]
  - Aggression [Recovered/Resolved]
  - Salivary hypersecretion [Recovered/Resolved]
  - Chills [Recovered/Resolved]
  - Head discomfort [Recovered/Resolved]
  - Off label use [Unknown]
  - Insomnia [Recovered/Resolved]
  - Headache [Recovered/Resolved]
